FAERS Safety Report 26167318 (Version 1)
Quarter: 2025Q4

REPORT INFORMATION
  Report Type: Spontaneous
  Country: CN (occurrence: CN)
  Receive Date: 20251217
  Receipt Date: 20251217
  Transmission Date: 20260118
  Serious: Yes (Hospitalization, Other)
  Sender: BAXTER
  Company Number: None

PATIENT
  Age: 81 Year
  Sex: Male
  Weight: 55 kg

DRUGS (13)
  1. CYCLOPHOSPHAMIDE [Suspect]
     Active Substance: CYCLOPHOSPHAMIDE
     Indication: Diffuse large B-cell lymphoma
     Dosage: 800 MG, QD
     Route: 041
     Dates: start: 20251115, end: 20251115
  2. SODIUM CHLORIDE [Suspect]
     Active Substance: SODIUM CHLORIDE
     Dosage: 600 ML, QD WITH RITUXIMAB, D0
     Route: 041
     Dates: start: 20251114, end: 20251114
  3. SODIUM CHLORIDE [Suspect]
     Active Substance: SODIUM CHLORIDE
     Dosage: 50 ML, QD WITH VINCRISTINE, D1
     Route: 041
     Dates: start: 20251115, end: 20251115
  4. RITUXIMAB [Suspect]
     Active Substance: RITUXIMAB
     Indication: Diffuse large B-cell lymphoma
     Dosage: 600 MG, QD (BATCH NO. OUTSOURCED UNK)
     Route: 041
     Dates: start: 20251114, end: 20251114
  5. CARBOPLATIN [Suspect]
     Active Substance: CARBOPLATIN
     Indication: Diffuse large B-cell lymphoma
     Dosage: 150 MG, QD
     Route: 038
     Dates: start: 20251115, end: 20251115
  6. VINCRISTINE SULFATE [Suspect]
     Active Substance: VINCRISTINE SULFATE
     Indication: Diffuse large B-cell lymphoma
     Dosage: 1 MG, QD
     Route: 041
     Dates: start: 20251115, end: 20251115
  7. DOXORUBICIN HYDROCHLORIDE [Suspect]
     Active Substance: DOXORUBICIN HYDROCHLORIDE
     Indication: Diffuse large B-cell lymphoma
     Dosage: 20 MG, QD (BATCH NO. OUTSOURCED UNK)
     Route: 041
     Dates: start: 20251115, end: 20251115
  8. BEVACIZUMAB [Suspect]
     Active Substance: BEVACIZUMAB
     Indication: Diffuse large B-cell lymphoma
     Dosage: 300 MG, QD (BATCH NO. OUTSOURCED UNK)
     Route: 038
     Dates: start: 20251115, end: 20251115
  9. SODIUM CHLORIDE [Suspect]
     Active Substance: SODIUM CHLORIDE
     Indication: Medication dilution
     Dosage: 100 ML, QD, WITH CYCLOPHOSPHAMIDE, D1
     Route: 041
     Dates: start: 20251115, end: 20251115
  10. SODIUM CHLORIDE [Suspect]
     Active Substance: SODIUM CHLORIDE
     Dosage: 500 ML, QD
     Route: 041
     Dates: start: 20251115, end: 20251115
  11. SODIUM CHLORIDE [Suspect]
     Active Substance: SODIUM CHLORIDE
     Dosage: 40 ML, QD, WITH BEVACIZUMAB
     Route: 034
     Dates: start: 20251115, end: 20251115
  12. DEXTROSE [Suspect]
     Active Substance: DEXTROSE MONOHYDRATE
     Indication: Medication dilution
     Dosage: 100 ML, QD WITH CARBOPLATIN
     Route: 034
     Dates: start: 20251115, end: 20251115
  13. DEXTROSE [Suspect]
     Active Substance: DEXTROSE MONOHYDRATE
     Indication: Medication dilution
     Dosage: 250 ML, QD WITH DOXORUBICIN LIPOSOMAL, D1, 21D
     Route: 041
     Dates: start: 20251115, end: 20251115

REACTIONS (4)
  - Myelosuppression [Not Recovered/Not Resolved]
  - Neutrophil count decreased [Not Recovered/Not Resolved]
  - Granulocyte count decreased [Recovering/Resolving]
  - White blood cell count decreased [Recovering/Resolving]

NARRATIVE: CASE EVENT DATE: 20251124
